FAERS Safety Report 4925727-4 (Version None)
Quarter: 2006Q1

REPORT INFORMATION
  Report Type: 
  Country: None (occurrence: None)
  Receive Date: 20060228
  Receipt Date: 20050131
  Transmission Date: 20060701
  Serious: No
  Sender: FDA-Public Use
  Company Number: US-GLAXOSMITHKLINE-A0543080A

PATIENT
  Age: 42 Year
  Sex: Female

DRUGS (3)
  1. LAMICTAL [Suspect]
     Indication: DEPRESSION
     Dosage: 50MG PER DAY
     Route: 048
     Dates: start: 20040925, end: 20041201
  2. FLOVENT [Concomitant]
  3. ALLEGRA [Concomitant]

REACTIONS (3)
  - MYOPIA [None]
  - RASH [None]
  - VISUAL DISTURBANCE [None]
